FAERS Safety Report 5530395-7 (Version None)
Quarter: 2007Q4

REPORT INFORMATION
  Report Type: 
  Country: None (occurrence: None)
  Receive Date: 20071130
  Receipt Date: 20071025
  Transmission Date: 20080405
  Serious: Yes (Hospitalization, Other)
  Sender: FDA-Public Use
  Company Number: PHBS2007US17980

PATIENT
  Age: 49 Year
  Sex: Female

DRUGS (8)
  1. ZOLEDRONIC ACID [Suspect]
  2. TAMOXIFEN CITRATE [Concomitant]
  3. CLONIDINE [Concomitant]
     Dosage: 0.1 MG, BID
  4. VENLAFAXINE HCL [Concomitant]
     Dosage: 150 MG, QID
  5. OXYCODONE HCL [Concomitant]
     Dosage: 10 MG, BID
  6. HYDROCODONE BITARTRATE [Concomitant]
     Indication: BREAKTHROUGH PAIN
  7. IRON SUPPLEMENTS [Concomitant]
  8. CALCIUM [Concomitant]

REACTIONS (21)
  - BACTERIAL INFECTION [None]
  - BIOPSY BONE ABNORMAL [None]
  - BONE DISORDER [None]
  - BONE GRAFT [None]
  - BREATH ODOUR [None]
  - FACIAL PAIN [None]
  - HAEMATOMA [None]
  - IMPAIRED HEALING [None]
  - JAW OPERATION [None]
  - JOINT SURGERY [None]
  - JOINT SWELLING [None]
  - OSTEONECROSIS [None]
  - OSTEOTOMY [None]
  - PARAESTHESIA ORAL [None]
  - PURULENCE [None]
  - SWELLING FACE [None]
  - TOOTH DISORDER [None]
  - TOOTH EXTRACTION [None]
  - WOUND DEBRIDEMENT [None]
  - WOUND TREATMENT [None]
  - X-RAY ABNORMAL [None]
